FAERS Safety Report 16171943 (Version 1)
Quarter: 2019Q2

REPORT INFORMATION
  Report Type: Spontaneous
  Country: US (occurrence: US)
  Receive Date: 20190409
  Receipt Date: 20190409
  Transmission Date: 20190711
  Serious: No
  Sender: FDA-Public Use
  Company Number: US-GLAXOSMITHKLINE-US2019060557

PATIENT
  Age: 72 Year
  Sex: Male

DRUGS (1)
  1. NICORETTE [Suspect]
     Active Substance: NICOTINE
     Indication: SMOKING CESSATION THERAPY
     Dosage: 2 MG, UNK

REACTIONS (4)
  - Product complaint [Unknown]
  - Suspected counterfeit product [Unknown]
  - Dysgeusia [Recovering/Resolving]
  - Nicotine dependence [Unknown]

NARRATIVE: CASE EVENT DATE: 20190402
